FAERS Safety Report 13719888 (Version 1)
Quarter: 2017Q3

REPORT INFORMATION
  Report Type: Spontaneous
  Country: CN (occurrence: CN)
  Receive Date: 20170705
  Receipt Date: 20170705
  Transmission Date: 20171127
  Serious: Yes (Other)
  Sender: FDA-Public Use
  Company Number: CN-GILEAD-2017-0281495

PATIENT
  Age: 57 Year
  Sex: Male

DRUGS (3)
  1. METOPROLOL. [Concomitant]
     Active Substance: METOPROLOL
     Indication: HYPERTENSION
     Route: 048
  2. LAMIVUDINE. [Concomitant]
     Active Substance: LAMIVUDINE
     Indication: HEPATITIS B
     Dosage: 100 MG, QD
     Route: 048
  3. ADEFOVIR DIPIVOXIL. [Suspect]
     Active Substance: ADEFOVIR DIPIVOXIL
     Indication: HEPATITIS B
     Dosage: 10 MG, QD
     Route: 048

REACTIONS (10)
  - Fracture [Unknown]
  - Condition aggravated [Unknown]
  - Osteoporosis [Unknown]
  - Bone density abnormal [Unknown]
  - Hypertension [Unknown]
  - Bone pain [Unknown]
  - Back pain [Unknown]
  - Osteomalacia [Unknown]
  - Fanconi syndrome acquired [Unknown]
  - Hypophosphataemia [Unknown]
